FAERS Safety Report 7408241-6 (Version None)
Quarter: 2011Q2

REPORT INFORMATION
  Report Type: 
  Country: None (occurrence: None)
  Receive Date: 20110412
  Receipt Date: 20110207
  Transmission Date: 20111010
  Serious: No
  Sender: FDA-Public Use
  Company Number: A0912260A

PATIENT
  Age: 61 Year
  Sex: Male

DRUGS (13)
  1. UNSPECIFIED MEDICATION [Concomitant]
  2. CLEAR LUNGS [Concomitant]
  3. VITAMIN D [Concomitant]
  4. VITAMIN E [Concomitant]
  5. JALYN [Suspect]
     Indication: BENIGN PROSTATIC HYPERPLASIA
     Dosage: 1CAP AT NIGHT
     Route: 048
     Dates: start: 20110202
  6. LEXAPRO [Concomitant]
  7. ASPIRIN [Concomitant]
  8. SPIRIVA [Concomitant]
  9. ADVAIR HFA [Concomitant]
  10. LORAZEPAM [Concomitant]
  11. PRILOSEC [Concomitant]
  12. ASCORBIC ACID [Concomitant]
  13. CO Q 10 [Concomitant]

REACTIONS (1)
  - THROAT IRRITATION [None]
